FAERS Safety Report 5595831-9 (Version None)
Quarter: 2008Q1

REPORT INFORMATION
  Report Type: 
  Country: None (occurrence: None)
  Receive Date: 20080118
  Receipt Date: 20080114
  Transmission Date: 20080703
  Serious: Yes (Other)
  Sender: FDA-Public Use
  Company Number: US-JNJFOC-20080103685

PATIENT
  Sex: Female
  Weight: 68.04 kg

DRUGS (2)
  1. CONCERTA [Suspect]
     Route: 048
  2. CONCERTA [Suspect]
     Indication: ATTENTION DEFICIT/HYPERACTIVITY DISORDER
     Route: 048

REACTIONS (6)
  - BLOOD PRESSURE INCREASED [None]
  - BREAST COSMETIC SURGERY [None]
  - HEART RATE INCREASED [None]
  - INSOMNIA [None]
  - OVARIAN MASS [None]
  - THINKING ABNORMAL [None]
